FAERS Safety Report 8581251-1 (Version None)
Quarter: 2012Q3

REPORT INFORMATION
  Report Type: 
  Country: None (occurrence: None)
  Receive Date: 20120809
  Receipt Date: 20120806
  Transmission Date: 20120928
  Serious: Yes (Hospitalization)
  Sender: FDA-Public Use
  Company Number: PHEH2012US015424

PATIENT
  Sex: Female
  Weight: 45.351 kg

DRUGS (8)
  1. ALPRAZOLAM [Concomitant]
     Indication: FIBROMYALGIA
     Dosage: 0.25 MG, QD
     Route: 048
  2. RECLAST [Suspect]
     Indication: OSTEOPOROSIS
     Route: 042
     Dates: start: 20110909
  3. DIGOXIN [Concomitant]
     Indication: ATRIAL FIBRILLATION
     Dosage: 0.125 MG, QD
     Route: 048
  4. METOPROLOL TARTRATE [Concomitant]
     Indication: BLOOD PRESSURE
     Dosage: 50 MG, QD
     Route: 048
  5. ASPIRIN [Concomitant]
     Dosage: 81 MG, QD
     Route: 048
  6. FISH OIL [Concomitant]
     Dosage: 1000 MG, QD
     Route: 048
  7. PREDNISONE TAB [Concomitant]
     Indication: ARTHRITIS
     Dosage: 2.5 MG, QD
     Route: 048
  8. VITAMIN D [Concomitant]
     Indication: ARTHRITIS
     Dosage: 400 MG, QD
     Route: 048

REACTIONS (7)
  - JAW DISORDER [None]
  - WEIGHT DECREASED [None]
  - GASTROINTESTINAL PAIN [None]
  - ARTHRALGIA [None]
  - DEHYDRATION [None]
  - ATRIAL FIBRILLATION [None]
  - BLOOD PRESSURE DECREASED [None]
